FAERS Safety Report 10412003 (Version 3)
Quarter: 2014Q3

REPORT INFORMATION
  Report Type: Report from Study
  Country: BR (occurrence: BR)
  Receive Date: 20140827
  Receipt Date: 20140908
  Transmission Date: 20150326
  Serious: Yes (Other)
  Sender: FDA-Public Use
  Company Number: PHHY2014BR106430

PATIENT
  Sex: Female
  Weight: 93 kg

DRUGS (5)
  1. CABERGOLINE. [Concomitant]
     Active Substance: CABERGOLINE
     Dosage: 3 TIMES PER WEEK
     Dates: start: 2013
  2. DIOVAN [Suspect]
     Active Substance: VALSARTAN
     Dosage: 320 MG, DAILY
     Route: 048
  3. DIPIRONE [Suspect]
     Active Substance: METAMIZOLE SODIUM
     Indication: PAIN
     Dosage: 2 DF, DAILY
     Route: 048
     Dates: start: 2011
  4. DIOVAN [Suspect]
     Active Substance: VALSARTAN
     Indication: HYPERTENSION
     Dosage: 160 MG, UNK
  5. METFORMIN [Concomitant]
     Active Substance: METFORMIN HYDROCHLORIDE
     Indication: DIABETES MELLITUS
     Dosage: 2 DF DAILY
     Route: 048

REACTIONS (9)
  - Macular hole [Recovering/Resolving]
  - Osteoarthritis [Recovering/Resolving]
  - Arthropathy [Recovering/Resolving]
  - Hypertension [Recovering/Resolving]
  - Blindness unilateral [Recovering/Resolving]
  - Visual impairment [Recovering/Resolving]
  - Pain [Recovering/Resolving]
  - Retinal detachment [Recovering/Resolving]
  - Renal disorder [Recovering/Resolving]

NARRATIVE: CASE EVENT DATE: 2012
